FAERS Safety Report 9903586 (Version 2)
Quarter: 2014Q1

REPORT INFORMATION
  Report Type: Spontaneous
  Country: FR (occurrence: FR)
  Receive Date: 20140217
  Receipt Date: 20140217
  Transmission Date: 20141002
  Serious: Yes (Other)
  Sender: FDA-Public Use
  Company Number: FR-ABBVIE-14P-056-1195218-00

PATIENT
  Age: 41 Year
  Sex: Male
  Weight: 64 kg

DRUGS (3)
  1. HUMIRA [Suspect]
     Indication: CROHN^S DISEASE
     Dates: start: 200801, end: 201103
  2. HUMIRA [Suspect]
     Dates: start: 201103, end: 2013
  3. PENTASA [Concomitant]
     Indication: PRODUCT USED FOR UNKNOWN INDICATION

REACTIONS (4)
  - Spinal pain [Unknown]
  - Hyperhidrosis [Unknown]
  - Non-Hodgkin^s lymphoma [Unknown]
  - Pyrexia [Unknown]
